FAERS Safety Report 12664829 (Version 1)
Quarter: 2016Q3

REPORT INFORMATION
  Report Type: Spontaneous
  Country: US (occurrence: US)
  Receive Date: 20160818
  Receipt Date: 20160818
  Transmission Date: 20161109
  Serious: Yes (Hospitalization, Other)
  Sender: FDA-Public Use
  Company Number: US-INDIVIOR LIMITED-INDV-093723-2016

PATIENT
  Age: 27 Year
  Sex: Female

DRUGS (5)
  1. TRAZODONE [Concomitant]
     Active Substance: TRAZODONE HYDROCHLORIDE
     Indication: PRODUCT USED FOR UNKNOWN INDICATION
     Dosage: UNK
     Route: 048
  2. LITHIUM. [Concomitant]
     Active Substance: LITHIUM
     Indication: BIPOLAR DISORDER
     Dosage: UNK
     Route: 048
  3. SUBOXONE [Suspect]
     Active Substance: BUPRENORPHINE HYDROCHLORIDE\NALOXONE HYDROCHLORIDE
     Indication: DRUG DEPENDENCE
     Dosage: 8 MG, DAILY, ABOUT 2 YEARS
     Route: 060
     Dates: start: 2014, end: 201601
  4. SUBOXONE [Suspect]
     Active Substance: BUPRENORPHINE HYDROCHLORIDE\NALOXONE HYDROCHLORIDE
     Dosage: 8 MG, DAILY
     Route: 060
     Dates: start: 201603, end: 201608
  5. SUBOXONE [Suspect]
     Active Substance: BUPRENORPHINE HYDROCHLORIDE\NALOXONE HYDROCHLORIDE
     Dosage: VARIOUS TAPERING DOSES BY CUTTING THE FILM,DAILY
     Route: 060
     Dates: start: 201608, end: 20160808

REACTIONS (10)
  - Hip fracture [Recovered/Resolved]
  - Intentional underdose [Recovered/Resolved]
  - Tibia fracture [Recovered/Resolved]
  - Ankle fracture [Recovered/Resolved]
  - Drug detoxification [Unknown]
  - Femur fracture [Recovered/Resolved]
  - Therapy cessation [Recovered/Resolved]
  - Mania [Recovered/Resolved]
  - Product preparation error [Recovered/Resolved]
  - Road traffic accident [Recovered/Resolved]

NARRATIVE: CASE EVENT DATE: 2016
